FAERS Safety Report 6148426-2 (Version None)
Quarter: 2009Q2

REPORT INFORMATION
  Report Type: 
  Country: None (occurrence: None)
  Receive Date: 20090408
  Receipt Date: 20090330
  Transmission Date: 20091009
  Serious: Yes (Hospitalization, Other)
  Sender: FDA-Public Use
  Company Number: CO-PFIZER INC-2008040727

PATIENT

DRUGS (3)
  1. CARDURA [Suspect]
     Indication: PROSTATIC DISORDER
     Dosage: 4 MG, 1X/DAY
     Route: 048
     Dates: start: 20080301, end: 20080501
  2. GLIBENCLAMIDE [Concomitant]
     Indication: DIABETES MELLITUS
     Dosage: 5 MG, 3X/DAY
  3. ENALAPRIL [Concomitant]
     Indication: HYPERTENSION
     Dosage: 20 MG DAILY

REACTIONS (3)
  - PANCREATITIS [None]
  - TONGUE DISORDER [None]
  - VISION BLURRED [None]
